FAERS Safety Report 9155703 (Version 1)
Quarter: 2013Q1

REPORT INFORMATION
  Report Type: Spontaneous
  Country: IT (occurrence: IT)
  Receive Date: 20130311
  Receipt Date: 20130311
  Transmission Date: 20140127
  Serious: Yes (Disabling)
  Sender: FDA-Public Use
  Company Number: IT-TEVA-389587ISR

PATIENT
  Age: 70 Year
  Sex: Female
  Weight: 75 kg

DRUGS (1)
  1. CARVEDILOL [Suspect]
     Dosage: 25 MILLIGRAM DAILY;
     Route: 048
     Dates: start: 20070101, end: 20121212

REACTIONS (3)
  - Vitreous detachment [Not Recovered/Not Resolved]
  - Rhinitis atrophic [Not Recovered/Not Resolved]
  - Lacrimal disorder [Not Recovered/Not Resolved]
